FAERS Safety Report 4764887-5 (Version None)
Quarter: 2005Q3

REPORT INFORMATION
  Report Type: 
  Country: None (occurrence: None)
  Receive Date: 20050906
  Receipt Date: 20050823
  Transmission Date: 20060218
  Serious: Yes (Hospitalization)
  Sender: FDA-Public Use
  Company Number: 107261ISR

PATIENT
  Age: 81 Year
  Sex: Female

DRUGS (1)
  1. CARBOPLATIN [Suspect]
     Dosage: 350 MILLIGRAM INTRAVENOUS (NOS)
     Route: 042
     Dates: start: 20050530, end: 20050627

REACTIONS (5)
  - ATRIAL FIBRILLATION [None]
  - HYPOXIA [None]
  - LOSS OF CONSCIOUSNESS [None]
  - SHOCK [None]
  - TACHYCARDIA [None]
